FAERS Safety Report 25174473 (Version 1)
Quarter: 2025Q2

REPORT INFORMATION
  Report Type: Spontaneous
  Country: US (occurrence: US)
  Receive Date: 20250408
  Receipt Date: 20250408
  Transmission Date: 20250717
  Serious: No
  Sender: FERRING
  Company Number: US-FERRINGPH-2024FE01765

PATIENT
  Age: 78 Year
  Sex: Male
  Weight: 95 kg

DRUGS (2)
  1. FIRMAGON [Suspect]
     Active Substance: DEGARELIX ACETATE
     Indication: Product used for unknown indication
     Route: 065
     Dates: start: 20240315
  2. MORNIFLUMATE [Concomitant]
     Active Substance: MORNIFLUMATE
     Indication: Product used for unknown indication
     Route: 065

REACTIONS (1)
  - Injection site mass [Recovered/Resolved]

NARRATIVE: CASE EVENT DATE: 20240315
